FAERS Safety Report 19098883 (Version 1)
Quarter: 2021Q2

REPORT INFORMATION
  Report Type: Spontaneous
  Country: US (occurrence: US)
  Receive Date: 20210406
  Receipt Date: 20210406
  Transmission Date: 20210717
  Serious: No
  Sender: FDA-Public Use
  Company Number: US-SA-2021SA112184

PATIENT
  Age: 21 Year
  Sex: Female

DRUGS (1)
  1. DUPIXENT [Suspect]
     Active Substance: DUPILUMAB
     Dosage: 1 DF, PRN
     Route: 058
     Dates: start: 202009, end: 202103

REACTIONS (2)
  - Rosacea [Unknown]
  - Product use issue [Unknown]

NARRATIVE: CASE EVENT DATE: 202009
